FAERS Safety Report 19457980 (Version 1)
Quarter: 2021Q2

REPORT INFORMATION
  Report Type: Spontaneous
  Country: MX (occurrence: MX)
  Receive Date: 20210624
  Receipt Date: 20210624
  Transmission Date: 20210717
  Serious: Yes (Hospitalization)
  Sender: FDA-Public Use
  Company Number: MX-INDIVIOR EUROPE LIMITED-INDV-130128-2021

PATIENT

DRUGS (1)
  1. BUPRENORPHINE. [Suspect]
     Active Substance: BUPRENORPHINE
     Indication: PROCEDURAL PAIN
     Dosage: 1 MICROGRAM/KILOGRAM, UNK
     Route: 042
     Dates: start: 2016, end: 2016

REACTIONS (1)
  - Hospitalisation [Unknown]
